FAERS Safety Report 10342591 (Version 7)
Quarter: 2015Q2

REPORT INFORMATION
  Report Type: Report from Study
  Country: US (occurrence: US)
  Receive Date: 20140725
  Receipt Date: 20150630
  Transmission Date: 20150821
  Serious: Yes (Other)
  Sender: FDA-Public Use
  Company Number: US-SA-2014SA097367

PATIENT
  Age: 58 Year
  Sex: Female

DRUGS (4)
  1. AUBAGIO [Suspect]
     Active Substance: TERIFLUNOMIDE
     Indication: MULTIPLE SCLEROSIS
     Route: 048
     Dates: start: 20131007
  2. NUVIGIL [Concomitant]
     Active Substance: ARMODAFINIL
  3. AUBAGIO [Suspect]
     Active Substance: TERIFLUNOMIDE
     Indication: MULTIPLE SCLEROSIS
     Route: 048
  4. ACIPHEX [Concomitant]
     Active Substance: RABEPRAZOLE SODIUM

REACTIONS (25)
  - Peripheral swelling [Unknown]
  - Tremor [Unknown]
  - Headache [Unknown]
  - Joint swelling [Unknown]
  - Anaemia [Not Recovered/Not Resolved]
  - Ligament sprain [Unknown]
  - Posture abnormal [Unknown]
  - Ankle fracture [Unknown]
  - Hypoaesthesia [Not Recovered/Not Resolved]
  - Vomiting [Unknown]
  - Fatigue [Unknown]
  - Flatulence [Unknown]
  - Muscular weakness [Unknown]
  - Blood pressure increased [Unknown]
  - Peripheral venous disease [Unknown]
  - Tendon injury [Unknown]
  - Hypokinesia [Unknown]
  - Malaise [Recovered/Resolved]
  - Diverticulitis [Not Recovered/Not Resolved]
  - Asthenia [Unknown]
  - Sinusitis [Unknown]
  - Foot fracture [Recovered/Resolved]
  - Weight decreased [Recovering/Resolving]
  - Influenza [Unknown]
  - Diarrhoea [Unknown]

NARRATIVE: CASE EVENT DATE: 2014
